FAERS Safety Report 16460545 (Version 1)
Quarter: 2019Q2

REPORT INFORMATION
  Report Type: Report from Study
  Country: FR (occurrence: FR)
  Receive Date: 20190620
  Receipt Date: 20190620
  Transmission Date: 20190711
  Serious: Yes (Hospitalization, Other)
  Sender: FDA-Public Use
  Company Number: FR-MYLANLABS-2019M1057951

PATIENT
  Age: 45 Year
  Sex: Male

DRUGS (1)
  1. KETOPROFEN. [Suspect]
     Active Substance: KETOPROFEN
     Indication: BURSITIS
     Route: 061

REACTIONS (5)
  - Off label use [Unknown]
  - Dermatitis bullous [Recovered/Resolved with Sequelae]
  - Staphylococcal infection [Unknown]
  - Application site rash [Recovered/Resolved with Sequelae]
  - Joint range of motion decreased [Unknown]
